FAERS Safety Report 19132227 (Version 2)
Quarter: 2022Q1

REPORT INFORMATION
  Report Type: Spontaneous
  Country: ES (occurrence: ES)
  Receive Date: 20210413
  Receipt Date: 20220323
  Transmission Date: 20220423
  Serious: Yes (Other)
  Sender: FDA-Public Use
  Company Number: None

PATIENT
  Age: 90 Year
  Sex: Female
  Weight: 64 kg

DRUGS (6)
  1. QUETIAPINE [Suspect]
     Active Substance: QUETIAPINE
     Dosage: 100MILLLIGRAM; QUETIAPINA (1136A)
     Route: 048
     Dates: start: 20210312
  2. MEMANTINE HYDROCHLORIDE [Suspect]
     Active Substance: MEMANTINE HYDROCHLORIDE
     Indication: Dementia Alzheimer^s type
     Dosage: 20MILLLIGRAM; AXURA 20 MG COMPRIMIDOS RECUBIERTOS CON PELICULA, 56 COMPRIMIDOS
     Route: 048
     Dates: start: 20200813
  3. BISOPROLOL [Concomitant]
     Active Substance: BISOPROLOL
     Dosage: 2.5MILLLIGRAM; BISOPROLOL (2328A)
     Route: 048
  4. TRAZODONE HYDROCHLORIDE [Concomitant]
     Active Substance: TRAZODONE HYDROCHLORIDE
     Dosage: 100MILLIGRAM; TRAZODONA HIDROCLORURO (3160CH)
     Route: 048
  5. ENALAPRIL MALEATE [Concomitant]
     Active Substance: ENALAPRIL MALEATE
     Indication: Hypertension
     Dosage: 5MILLIGRAM; ENALAPRIL MALEATO (2142MA)
     Route: 048
  6. YASNAL [Concomitant]
     Dosage: YASNAL 10 MG COMPRIMIDOS RECUBIERTOS CON PELICULA EFG , 28 COMPRIMIDOS; UNIT DOSE: 10 MG
     Route: 048

REACTIONS (2)
  - Deep vein thrombosis [Recovering/Resolving]
  - Pulmonary embolism [Recovering/Resolving]

NARRATIVE: CASE EVENT DATE: 20210311
